FAERS Safety Report 14573921 (Version 2)
Quarter: 2018Q1

REPORT INFORMATION
  Report Type: Report from Study
  Country: US (occurrence: US)
  Receive Date: 20180226
  Receipt Date: 20180301
  Transmission Date: 20180509
  Serious: Yes (Other)
  Sender: FDA-Public Use
  Company Number: US-PFIZER INC-2018074869

PATIENT
  Age: 21 Year

DRUGS (1)
  1. BUPIVACAINE HCL [Suspect]
     Active Substance: BUPIVACAINE HYDROCHLORIDE
     Indication: LOCAL ANAESTHESIA
     Dosage: 250 MG, UNK
     Route: 042

REACTIONS (3)
  - Cardiotoxicity [Unknown]
  - Incorrect route of drug administration [Unknown]
  - Neurotoxicity [Unknown]
